FAERS Safety Report 7076357-2 (Version None)
Quarter: 2010Q4

REPORT INFORMATION
  Report Type: 
  Country: None (occurrence: None)
  Receive Date: 20101021
  Receipt Date: 20101013
  Transmission Date: 20110411
  Serious: Yes (Hospitalization)
  Sender: FDA-Public Use
  Company Number: 692405

PATIENT
  Age: 51 Year
  Sex: Male
  Weight: 71.5 kg

DRUGS (8)
  1. VINCRISTINE SULFATE [Suspect]
     Indication: GLIOMA
     Dosage: 2 MG MILLIGRAM(S), INTRAVENOUS
     Route: 042
     Dates: start: 20100607, end: 20100607
  2. VINCRISTINE SULFATE [Suspect]
     Indication: GLIOMA
     Dosage: 2 MG MILLIGRAM(S), INTRAVENOUS
     Route: 042
     Dates: start: 20100721, end: 20100721
  3. (HERBAL PREPARATION) [Concomitant]
  4. DEXAMETHASONE [Concomitant]
  5. LACTULOSE [Concomitant]
  6. PROCARBAZINE HYDROCHLORIDE [Concomitant]
  7. (LOMUSTINE) [Concomitant]
  8. OMEPRAZOLE [Concomitant]

REACTIONS (2)
  - HEPATITIS [None]
  - JAUNDICE CHOLESTATIC [None]
